FAERS Safety Report 8024038-0 (Version None)
Quarter: 2012Q1

REPORT INFORMATION
  Report Type: 
  Country: None (occurrence: None)
  Receive Date: 20120105
  Receipt Date: 20111229
  Transmission Date: 20120608
  Serious: Yes (Hospitalization, Other)
  Sender: FDA-Public Use
  Company Number: DE-JNJFOC-20111111717

PATIENT
  Sex: Female
  Weight: 80 kg

DRUGS (6)
  1. DIAZEPAM [Concomitant]
     Indication: PSYCHOTIC DISORDER
     Route: 065
     Dates: end: 20111122
  2. TRUXAL [Concomitant]
     Indication: PSYCHOTIC DISORDER
     Route: 065
  3. RISPERDAL CONSTA [Suspect]
     Indication: PSYCHOTIC DISORDER
     Route: 030
     Dates: start: 20030101, end: 20111116
  4. ACE INHIBITOR NOS [Concomitant]
     Indication: HYPERTENSION
     Route: 065
  5. SOLIAN [Concomitant]
     Route: 065
  6. HALOPERIDOL [Suspect]
     Indication: PSYCHOTIC DISORDER
     Route: 048

REACTIONS (1)
  - ABSCESS [None]
